FAERS Safety Report 25792560 (Version 1)
Quarter: 2025Q3

REPORT INFORMATION
  Report Type: Spontaneous
  Country: CL (occurrence: CL)
  Receive Date: 20250911
  Receipt Date: 20250911
  Transmission Date: 20251021
  Serious: Yes (Death)
  Sender: ROCHE
  Company Number: CL-BoehringerIngelheim-2025-BI-093591

PATIENT
  Sex: Male

DRUGS (1)
  1. ALTEPLASE [Suspect]
     Active Substance: ALTEPLASE
     Indication: Cerebrovascular accident
     Route: 065

REACTIONS (4)
  - Cerebrovascular accident [Fatal]
  - Acute respiratory failure [Fatal]
  - Neurological decompensation [Fatal]
  - Aspiration [Fatal]
